FAERS Safety Report 6608441-9 (Version None)
Quarter: 2010Q1

REPORT INFORMATION
  Report Type: 
  Country: None (occurrence: None)
  Receive Date: 20100301
  Receipt Date: 20100223
  Transmission Date: 20100710
  Serious: Yes (Hospitalization)
  Sender: FDA-Public Use
  Company Number: US-GILEAD-2010-0027187

PATIENT
  Sex: Female
  Weight: 90.8 kg

DRUGS (13)
  1. LETAIRIS [Suspect]
     Indication: PULMONARY ARTERIAL HYPERTENSION
  2. REMODULIN [Suspect]
  3. TRAMADOL HCL [Suspect]
     Route: 048
  4. SPIRONOLACTONE [Concomitant]
     Route: 048
  5. FLOLAN [Concomitant]
     Indication: PULMONARY ARTERIAL HYPERTENSION
     Route: 042
     Dates: start: 20091014
  6. AMBIEN [Concomitant]
     Route: 048
  7. ADCIRCA [Concomitant]
     Indication: PULMONARY ARTERIAL HYPERTENSION
     Route: 048
     Dates: start: 20090814
  8. FUROSEMIDE [Concomitant]
     Route: 048
  9. HYDROXYCHLOROQUINE SULFATE [Concomitant]
     Route: 048
  10. POTASSIUM CL [Concomitant]
     Route: 048
  11. PRILOSEC [Concomitant]
     Route: 048
  12. OXYGEN [Concomitant]
     Route: 045
  13. TYLENOL PM EX-STR [Concomitant]
     Route: 048

REACTIONS (1)
  - CARDIAC FAILURE HIGH OUTPUT [None]
